FAERS Safety Report 19665351 (Version 1)
Quarter: 2021Q3

REPORT INFORMATION
  Report Type: Report from Study
  Country: None (occurrence: US)
  Receive Date: 20210806
  Receipt Date: 20210806
  Transmission Date: 20211014
  Serious: Yes (Hospitalization)
  Sender: FDA-Public Use
  Company Number: US-ABBVIE-21K-163-4023587-00

PATIENT
  Sex: Female

DRUGS (5)
  1. VENCLEXTA [Suspect]
     Active Substance: VENETOCLAX
     Indication: CHRONIC LYMPHOCYTIC LEUKAEMIA
     Dosage: DAYS 21 TO 28; TOOK WITH A MEAL AND WATER
     Route: 048
     Dates: start: 2021, end: 2021
  2. VENCLEXTA [Suspect]
     Active Substance: VENETOCLAX
     Dosage: TOOK WITH A MEAL AND WATER
     Route: 048
     Dates: start: 2021, end: 2021
  3. VENCLEXTA [Suspect]
     Active Substance: VENETOCLAX
     Dosage: TOOK WITH A MEAL AND WATER
     Route: 048
     Dates: start: 2021, end: 2021
  4. OCREVUS [Suspect]
     Active Substance: OCRELIZUMAB
     Indication: PRODUCT USED FOR UNKNOWN INDICATION
     Route: 065
  5. VENCLEXTA [Suspect]
     Active Substance: VENETOCLAX
     Dosage: TOOK WITH A MEAL AND WATER
     Route: 048
     Dates: start: 2021

REACTIONS (1)
  - Rehabilitation therapy [Not Recovered/Not Resolved]

NARRATIVE: CASE EVENT DATE: 2021
